FAERS Safety Report 10073438 (Version 1)
Quarter: 2014Q2

REPORT INFORMATION
  Report Type: Spontaneous
  Country: US (occurrence: US)
  Receive Date: 20140411
  Receipt Date: 20140411
  Transmission Date: 20141212
  Serious: Yes (Other)
  Sender: FDA-Public Use
  Company Number: US-GILEAD-2014-0099129

PATIENT
  Sex: Male

DRUGS (1)
  1. TRUVADA [Suspect]
     Indication: PRODUCT USED FOR UNKNOWN INDICATION
     Dosage: UNK
     Route: 065

REACTIONS (5)
  - Immune thrombocytopenic purpura [Unknown]
  - Eye swelling [Recovered/Resolved]
  - Rash generalised [Recovered/Resolved]
  - Drug hypersensitivity [Unknown]
  - Pruritus [Recovered/Resolved]
